FAERS Safety Report 4638707-3 (Version None)
Quarter: 2005Q2

REPORT INFORMATION
  Report Type: 
  Country: None (occurrence: None)
  Receive Date: 20050418
  Receipt Date: 20050418
  Transmission Date: 20051028
  Serious: Yes (Other)
  Sender: FDA-Public Use
  Company Number: None

PATIENT
  Age: 31 Year
  Sex: Female
  Weight: 83.0083 kg

DRUGS (3)
  1. PROCHLORPERAZINE EDISYLATE [Suspect]
     Indication: VOMITING
     Dosage: 5 MG IV X 1
     Route: 042
  2. DILAUDID [Concomitant]
  3. COMPAZINE [Concomitant]

REACTIONS (2)
  - ANXIETY [None]
  - UNEVALUABLE EVENT [None]
